FAERS Safety Report 14176460 (Version 1)
Quarter: 2017Q4

REPORT INFORMATION
  Report Type: Spontaneous
  Country: US (occurrence: US)
  Receive Date: 20171109
  Receipt Date: 20171109
  Transmission Date: 20180321
  Serious: No
  Sender: FDA-Public Use
  Company Number: US-BRISTOL-MYERS SQUIBB COMPANY-BMS-2017-099556

PATIENT
  Age: 86 Year
  Sex: Male

DRUGS (1)
  1. ELIQUIS [Suspect]
     Active Substance: APIXABAN
     Indication: PRODUCT USED FOR UNKNOWN INDICATION
     Dosage: 2.5 MG
     Route: 048

REACTIONS (7)
  - Abdominal pain upper [Unknown]
  - Faeces discoloured [Unknown]
  - Chest pain [Unknown]
  - Renal disorder [Unknown]
  - Arthropathy [Unknown]
  - Dyspnoea [Unknown]
  - Dizziness [Unknown]
